FAERS Safety Report 9403652 (Version 3)
Quarter: 2013Q3

REPORT INFORMATION
  Report Type: Report from Study
  Country: FR (occurrence: FR)
  Receive Date: 20130717
  Receipt Date: 20130807
  Transmission Date: 20140515
  Serious: Yes (Life-Threatening, Hospitalization)
  Sender: FDA-Public Use
  Company Number: FR-ROCHE-1249710

PATIENT
  Age: 70 Year
  Sex: Female

DRUGS (2)
  1. VEMURAFENIB [Suspect]
     Indication: MALIGNANT MELANOMA
     Route: 048
     Dates: start: 20130528
  2. VEMURAFENIB [Suspect]
     Route: 065
     Dates: start: 20130618

REACTIONS (2)
  - Pericarditis [Not Recovered/Not Resolved]
  - Atrial fibrillation [Recovered/Resolved]
